FAERS Safety Report 18629221 (Version 2)
Quarter: 2020Q4

REPORT INFORMATION
  Report Type: Report from Study
  Country: CA (occurrence: CA)
  Receive Date: 20201217
  Receipt Date: 20201230
  Transmission Date: 20210114
  Serious: Yes (Other)
  Sender: FDA-Public Use
  Company Number: CA-TAKEDA-2020TUS058133

PATIENT
  Age: 57 Year
  Sex: Male

DRUGS (2)
  1. VEDOLIZUMAB [Suspect]
     Active Substance: VEDOLIZUMAB
     Dosage: 300 MILLIGRAM
     Route: 042
  2. VEDOLIZUMAB [Suspect]
     Active Substance: VEDOLIZUMAB
     Indication: COLITIS ULCERATIVE
     Dosage: 300 MILLIGRAM
     Route: 042
     Dates: start: 20201111

REACTIONS (8)
  - Haematochezia [Unknown]
  - Dermatitis acneiform [Unknown]
  - Constipation [Unknown]
  - Rash erythematous [Unknown]
  - Pruritus [Unknown]
  - Dyschezia [Unknown]
  - Abnormal faeces [Unknown]
  - Rash papular [Unknown]
